FAERS Safety Report 5235372-1 (Version None)
Quarter: 2007Q1

REPORT INFORMATION
  Report Type: 
  Country: None (occurrence: None)
  Receive Date: 20070208
  Receipt Date: 20070208
  Transmission Date: 20070707
  Serious: Yes (Hospitalization)
  Sender: FDA-Public Use
  Company Number: None

PATIENT
  Age: 80 Year
  Sex: Female
  Weight: 66 kg

DRUGS (16)
  1. INTEGRILIN [Suspect]
     Indication: CATHETERISATION CARDIAC
     Dosage: 5.6 ML ONCE IV BOLUS
     Route: 040
  2. INTEGRILIN [Suspect]
     Indication: CATHETERISATION CARDIAC
     Dosage: 5.2 ML/HOUR IV DRIP
     Route: 041
  3. MORPHINE [Concomitant]
  4. METOPROLOL SUCCINATE [Concomitant]
  5. HALOPERIDOL [Concomitant]
  6. CLONIDINE [Concomitant]
  7. FENTANYL [Concomitant]
  8. MIDAZOLAM HCL [Concomitant]
  9. BIVALIRUDIN [Concomitant]
  10. ACETAMINOPHEN [Concomitant]
  11. PROMETHAZINE [Concomitant]
  12. SIMVASTATIN [Concomitant]
  13. INSULIN [Concomitant]
  14. VALSARTAN [Concomitant]
  15. PANTOPRAZOLE SODIUM [Concomitant]
  16. ASPIRIN [Concomitant]

REACTIONS (2)
  - PLATELET COUNT DECREASED [None]
  - POST PROCEDURAL COMPLICATION [None]
